FAERS Safety Report 14718575 (Version 1)
Quarter: 2018Q2

REPORT INFORMATION
  Report Type: Report from Study
  Country: None (occurrence: US)
  Receive Date: 20180404
  Receipt Date: 20180404
  Transmission Date: 20180711
  Serious: Yes (Other)
  Sender: FDA-Public Use
  Company Number: US-ABBVIE-18K-163-2297457-00

PATIENT
  Age: 50 Year
  Sex: Male
  Weight: 97.61 kg

DRUGS (3)
  1. HUMIRA [Suspect]
     Active Substance: ADALIMUMAB
     Route: 058
     Dates: start: 201707, end: 201712
  2. HUMIRA [Suspect]
     Active Substance: ADALIMUMAB
     Route: 058
     Dates: start: 201802, end: 201802
  3. HUMIRA [Suspect]
     Active Substance: ADALIMUMAB
     Indication: PSORIATIC ARTHROPATHY
     Route: 058
     Dates: start: 2012, end: 201707

REACTIONS (7)
  - Surgical failure [Unknown]
  - Back pain [Not Recovered/Not Resolved]
  - Device deployment issue [Recovered/Resolved]
  - Tooth loss [Recovered/Resolved]
  - Medical device site pain [Recovering/Resolving]
  - Tooth fracture [Recovered/Resolved]
  - Medical device site irritation [Recovering/Resolving]

NARRATIVE: CASE EVENT DATE: 201707
